FAERS Safety Report 6173128-6 (Version None)
Quarter: 2009Q2

REPORT INFORMATION
  Report Type: 
  Country: None (occurrence: None)
  Receive Date: 20090430
  Receipt Date: 20090421
  Transmission Date: 20091009
  Serious: Yes (Hospitalization, Other)
  Sender: FDA-Public Use
  Company Number: JP-PFIZER INC-2009189119

PATIENT

DRUGS (10)
  1. LIPITOR [Suspect]
     Indication: HYPERLIPIDAEMIA
     Dosage: 10 MG, 1X/DAY,UID
     Route: 048
     Dates: start: 20031113, end: 20070521
  2. ABILIFY [Suspect]
     Indication: SCHIZOPHRENIA
     Dosage: 6 MG, 3X/DAY
     Route: 048
     Dates: start: 20070410
  3. ABILIFY [Suspect]
     Dosage: 6 MG, 4X/DAY
     Route: 048
     Dates: start: 20070521
  4. ABILIFY [Suspect]
     Dosage: 6 MG, 1X/DAY
     Route: 048
     Dates: end: 20070521
  5. ZYPREXA [Concomitant]
     Dosage: UNK
     Dates: start: 20060131, end: 20070514
  6. WYPAX [Concomitant]
     Dosage: UNK
     Dates: start: 20060310, end: 20070521
  7. ROHYPNOL [Concomitant]
     Dosage: UNK
     Dates: start: 20051011, end: 20070521
  8. ISOMYTAL [Concomitant]
     Dosage: UNK
     Dates: start: 20060111, end: 20070521
  9. BROMVALERYLUREA [Concomitant]
     Dosage: UNK
     Dates: start: 20060111, end: 20070521
  10. PURSENNID [Concomitant]
     Dosage: UNK
     Dates: start: 20061114, end: 20070521

REACTIONS (1)
  - NEUROLEPTIC MALIGNANT SYNDROME [None]
